FAERS Safety Report 7583084-1 (Version None)
Quarter: 2011Q2

REPORT INFORMATION
  Report Type: 
  Country: None (occurrence: None)
  Receive Date: 20110630
  Receipt Date: 20110620
  Transmission Date: 20111010
  Serious: Yes (Hospitalization, Other)
  Sender: FDA-Public Use
  Company Number: US-ELI_LILLY_AND_COMPANY-US201106007752

PATIENT
  Age: 61 Year
  Sex: Male

DRUGS (4)
  1. ASPIRIN [Concomitant]
  2. FISH OIL [Concomitant]
  3. MULTI-VITAMIN [Concomitant]
  4. CIALIS [Suspect]
     Indication: ERECTILE DYSFUNCTION
     Dosage: 20 MG, PRN
     Dates: start: 20090101

REACTIONS (3)
  - ACCIDENTAL OVERDOSE [None]
  - EXPIRED DRUG ADMINISTERED [None]
  - PROSTATECTOMY [None]
